FAERS Safety Report 5908355-3 (Version None)
Quarter: 2008Q4

REPORT INFORMATION
  Report Type: 
  Country: None (occurrence: None)
  Receive Date: 20081002
  Receipt Date: 20081002
  Transmission Date: 20090506
  Serious: Yes (Hospitalization)
  Sender: FDA-Public Use
  Company Number: None

PATIENT
  Age: 71 Year
  Sex: Male
  Weight: 103 kg

DRUGS (6)
  1. OXALIPLATIN [Suspect]
     Indication: PANCREATIC CARCINOMA
     Dosage: 174 D1 + 15 IV
     Route: 042
     Dates: start: 20080909
  2. SORAFENIB [Suspect]
     Indication: PANCREATIC CARCINOMA
     Dosage: 200 MG D1 THROUGH 28 PO
     Route: 048
     Dates: start: 20080909, end: 20080922
  3. FENTANYL [Concomitant]
  4. DILAUDID [Concomitant]
  5. LOSTRARAN [Concomitant]
  6. HYDROCHLOROTHIAZIDE [Concomitant]

REACTIONS (9)
  - ANXIETY [None]
  - ATRIOVENTRICULAR BLOCK FIRST DEGREE [None]
  - DISTURBANCE IN ATTENTION [None]
  - FAILURE TO THRIVE [None]
  - INSOMNIA [None]
  - MEMORY IMPAIRMENT [None]
  - NERVOUS SYSTEM DISORDER [None]
  - PANCREATIC MASS [None]
  - PULMONARY HYPERTENSION [None]
